FAERS Safety Report 7691897-0 (Version None)
Quarter: 2011Q3

REPORT INFORMATION
  Report Type: 
  Country: None (occurrence: None)
  Receive Date: 20110818
  Receipt Date: 20110504
  Transmission Date: 20111222
  Serious: Yes (Hospitalization)
  Sender: FDA-Public Use
  Company Number: PHHO2010SG06551

PATIENT
  Sex: Male
  Weight: 54 kg

DRUGS (2)
  1. AFINITOR [Suspect]
     Indication: METASTATIC RENAL CELL CARCINOMA
     Dosage: 10 MG, DAILY
     Route: 048
     Dates: start: 20100416, end: 20100428
  2. AVASTIN [Suspect]
     Indication: METASTATIC RENAL CELL CARCINOMA
     Dosage: UNK
     Dates: start: 20100416, end: 20100428

REACTIONS (10)
  - PAIN [None]
  - PNEUMONIA ASPIRATION [None]
  - PYREXIA [None]
  - DIZZINESS [None]
  - DEHYDRATION [None]
  - RASH [None]
  - DECREASED APPETITE [None]
  - DYSPHAGIA [None]
  - FATIGUE [None]
  - STOMATITIS [None]
